FAERS Safety Report 4307908-6 (Version None)
Quarter: 2004Q1

REPORT INFORMATION
  Report Type: 
  Country: None (occurrence: None)
  Receive Date: 20040225
  Receipt Date: 20031014
  Transmission Date: 20041129
  Serious: Yes (Disabling, Other)
  Sender: FDA-Public Use
  Company Number: WAES 0310USA01744

PATIENT
  Age: 56 Year
  Sex: Male
  Weight: 106.5953 kg

DRUGS (4)
  1. ZOCOR [Suspect]
     Indication: BLOOD CHOLESTEROL INCREASED
     Dosage: DAILY/PO
     Route: 048
     Dates: start: 20030102, end: 20030424
  2. ZOCOR [Suspect]
     Indication: HYPERLIPIDAEMIA
     Dosage: DAILY/PO
     Route: 048
     Dates: start: 20030102, end: 20030424
  3. SYNTHROID [Concomitant]
  4. ZESTRIL [Concomitant]

REACTIONS (5)
  - ASTHENIA [None]
  - BLOOD CREATINE PHOSPHOKINASE INCREASED [None]
  - MEDICATION ERROR [None]
  - MUSCLE CRAMP [None]
  - MYALGIA [None]
